FAERS Safety Report 12930160 (Version 1)
Quarter: 2016Q4

REPORT INFORMATION
  Report Type: Report from Study
  Country: AR (occurrence: AR)
  Receive Date: 20161110
  Receipt Date: 20161110
  Transmission Date: 20170207
  Serious: Yes (Hospitalization, Other)
  Sender: FDA-Public Use
  Company Number: AR-GILEAD-2015-0139694

PATIENT
  Age: 68 Year
  Sex: Female

DRUGS (1)
  1. AMBRISENTAN [Suspect]
     Active Substance: AMBRISENTAN
     Indication: PULMONARY ARTERIAL HYPERTENSION
     Dosage: 10 MG, QD
     Route: 065
     Dates: start: 20150119

REACTIONS (10)
  - Muscle strain [Unknown]
  - Disease progression [Unknown]
  - Influenza [Unknown]
  - Gait disturbance [Unknown]
  - Anaemia [Recovering/Resolving]
  - Pneumonia [Unknown]
  - Cataract [Recovered/Resolved with Sequelae]
  - Cough [Unknown]
  - Hypersensitivity [Unknown]
  - Fatigue [Unknown]
